FAERS Safety Report 12891315 (Version 1)
Quarter: 2016Q4

REPORT INFORMATION
  Report Type: Spontaneous
  Country: AU (occurrence: AU)
  Receive Date: 20161027
  Receipt Date: 20161027
  Transmission Date: 20170207
  Serious: Yes (Hospitalization, Other)
  Sender: FDA-Public Use
  Company Number: AU-ABBVIE-16K-008-1764072-00

PATIENT
  Sex: Female

DRUGS (1)
  1. HUMIRA [Suspect]
     Active Substance: ADALIMUMAB
     Indication: PRODUCT USED FOR UNKNOWN INDICATION
     Route: 058

REACTIONS (8)
  - Intestinal haemorrhage [Unknown]
  - Urinary tract infection [Unknown]
  - Intestinal obstruction [Unknown]
  - Gastrointestinal pain [Unknown]
  - Hot flush [Unknown]
  - Cardiomegaly [Unknown]
  - Infection [Unknown]
  - Injection site pain [Unknown]
